FAERS Safety Report 20637711 (Version 1)
Quarter: 2022Q1

REPORT INFORMATION
  Report Type: Spontaneous
  Country: US (occurrence: US)
  Receive Date: 20220325
  Receipt Date: 20220325
  Transmission Date: 20220424
  Serious: No
  Sender: FDA-Public Use
  Company Number: US-PFIZER INC-202101260294

PATIENT
  Age: 15 Year
  Sex: Male
  Weight: 56.7 kg

DRUGS (2)
  1. GENOTROPIN [Suspect]
     Active Substance: SOMATROPIN
     Indication: Growth hormone deficiency
     Dosage: 1.5 MG, DAILY
     Dates: start: 202104
  2. CHOLECALCIFEROL [Concomitant]
     Active Substance: CHOLECALCIFEROL
     Indication: Autoimmune thyroiditis
     Dosage: UNK
     Dates: start: 201906

REACTIONS (5)
  - Device issue [Unknown]
  - Drug dose omission by device [Unknown]
  - Incorrect dose administered [Unknown]
  - Poor quality device used [Unknown]
  - Product dispensing error [Unknown]

NARRATIVE: CASE EVENT DATE: 20210101
